FAERS Safety Report 8055425-2 (Version None)
Quarter: 2012Q1

REPORT INFORMATION
  Report Type: 
  Country: None (occurrence: None)
  Receive Date: 20120119
  Receipt Date: 20120112
  Transmission Date: 20120608
  Serious: Yes (Death)
  Sender: FDA-Public Use
  Company Number: GR-PFIZER INC-2012012473

PATIENT
  Age: 74 Year
  Sex: Male

DRUGS (10)
  1. CIPROFLOXACIN [Suspect]
     Indication: KLEBSIELLA INFECTION
  2. GENTAMICIN [Suspect]
     Indication: KLEBSIELLA INFECTION
  3. GENTAMICIN [Suspect]
     Indication: ACINETOBACTER INFECTION
  4. TIGECYCLINE [Suspect]
     Indication: ACINETOBACTER INFECTION
  5. VANCOMYCIN HCL [Suspect]
     Indication: ACINETOBACTER INFECTION
  6. CIPROFLOXACIN [Suspect]
     Indication: ACINETOBACTER INFECTION
  7. TIGECYCLINE [Suspect]
     Indication: KLEBSIELLA INFECTION
     Dosage: UNK
  8. COLISTIN [Suspect]
     Indication: KLEBSIELLA INFECTION
  9. VANCOMYCIN HCL [Suspect]
     Indication: KLEBSIELLA INFECTION
  10. COLISTIN [Suspect]
     Indication: ACINETOBACTER INFECTION

REACTIONS (13)
  - SEPTIC SHOCK [None]
  - MULTI-ORGAN DISORDER [None]
  - DRUG INEFFECTIVE [None]
  - KLEBSIELLA INFECTION [None]
  - PLATELET COUNT DECREASED [None]
  - RESPIRATORY DISTRESS [None]
  - MULTIPLE-DRUG RESISTANCE [None]
  - HYPOXIA [None]
  - ACINETOBACTER INFECTION [None]
  - WHITE BLOOD CELL COUNT DECREASED [None]
  - LUNG INFILTRATION [None]
  - HAEMATOCRIT DECREASED [None]
  - TRICHOSPORON INFECTION [None]
